FAERS Safety Report 12689610 (Version 5)
Quarter: 2022Q1

REPORT INFORMATION
  Report Type: Other
  Country: ZA (occurrence: ZA)
  Receive Date: 20160826
  Receipt Date: 20220322
  Transmission Date: 20220423
  Serious: Yes (Other)
  Sender: FDA-Public Use
  Company Number: ZA-002147023-PHHY2016ZA052545

PATIENT
  Age: 74 Year
  Sex: Male

DRUGS (21)
  1. LUCENTIS [Suspect]
     Active Substance: RANIBIZUMAB
     Indication: Neovascular age-related macular degeneration
     Route: 050
     Dates: start: 20151111
  2. LUCENTIS [Suspect]
     Active Substance: RANIBIZUMAB
     Indication: Age-related macular degeneration
     Dosage: LEFT EYE
     Route: 050
     Dates: start: 20151203
  3. LUCENTIS [Suspect]
     Active Substance: RANIBIZUMAB
     Dosage: LEFT EYE
     Route: 050
     Dates: start: 20160111
  4. LUCENTIS [Suspect]
     Active Substance: RANIBIZUMAB
     Dosage: LEFT EYE
     Route: 050
     Dates: start: 20160310
  5. LUCENTIS [Suspect]
     Active Substance: RANIBIZUMAB
     Dosage: LEFT EYE
     Route: 050
     Dates: start: 20160412
  6. LUCENTIS [Suspect]
     Active Substance: RANIBIZUMAB
     Route: 050
     Dates: start: 20160524
  7. LUCENTIS [Suspect]
     Active Substance: RANIBIZUMAB
     Route: 050
     Dates: start: 20160628, end: 20160628
  8. LUCENTIS [Suspect]
     Active Substance: RANIBIZUMAB
     Dosage: CYCLE 3
     Route: 050
     Dates: start: 20160811
  9. LUCENTIS [Suspect]
     Active Substance: RANIBIZUMAB
     Route: 050
     Dates: start: 20170112
  10. LUCENTIS [Suspect]
     Active Substance: RANIBIZUMAB
     Route: 050
  11. LUCENTIS [Suspect]
     Active Substance: RANIBIZUMAB
     Dosage: UNK
     Route: 050
     Dates: start: 20181102
  12. LUCENTIS [Suspect]
     Active Substance: RANIBIZUMAB
     Route: 050
     Dates: start: 20181210
  13. LUCENTIS [Suspect]
     Active Substance: RANIBIZUMAB
     Route: 050
     Dates: start: 20180121
  14. LUCENTIS [Suspect]
     Active Substance: RANIBIZUMAB
     Route: 050
     Dates: start: 20190304
  15. LUCENTIS [Suspect]
     Active Substance: RANIBIZUMAB
     Route: 050
     Dates: start: 20190404
  16. LUCENTIS [Suspect]
     Active Substance: RANIBIZUMAB
     Route: 050
  17. LUCENTIS [Suspect]
     Active Substance: RANIBIZUMAB
     Dosage: 0.05 ML/0.5 MG
     Route: 050
     Dates: start: 201711
  18. LUCENTIS [Suspect]
     Active Substance: RANIBIZUMAB
     Route: 050
     Dates: start: 20200617, end: 20200731
  19. LUCENTIS [Suspect]
     Active Substance: RANIBIZUMAB
     Route: 050
     Dates: start: 2016
  20. LUCENTIS [Suspect]
     Active Substance: RANIBIZUMAB
     Dosage: SOLUTION FOR INJECTION
     Route: 047
     Dates: start: 2016
  21. LUCENTIS [Suspect]
     Active Substance: RANIBIZUMAB
     Route: 047

REACTIONS (16)
  - Retinal oedema [Recovering/Resolving]
  - Dacryocanaliculitis [Unknown]
  - Retinal thickening [Unknown]
  - Choroidal neovascularisation [Unknown]
  - Retinal drusen [Unknown]
  - Detachment of retinal pigment epithelium [Unknown]
  - Subretinal fluid [Unknown]
  - Lenticular opacities [Unknown]
  - Retinal degeneration [Unknown]
  - Macular degeneration [Unknown]
  - Visual acuity reduced [Unknown]
  - Macular thickening [Unknown]
  - Corneal lesion [Unknown]
  - Metamorphopsia [Unknown]
  - Blepharitis [Recovered/Resolved]
  - Inappropriate schedule of product administration [Unknown]

NARRATIVE: CASE EVENT DATE: 20160101
